FAERS Safety Report 8439827-8 (Version None)
Quarter: 2012Q2

REPORT INFORMATION
  Report Type: 
  Country: None (occurrence: None)
  Receive Date: 20120615
  Receipt Date: 20120612
  Transmission Date: 20120825
  Serious: Yes (Death, Other)
  Sender: FDA-Public Use
  Company Number: CO-PFIZER INC-2012056855

PATIENT
  Age: 78 Year
  Sex: Male

DRUGS (6)
  1. TIMOLOL MALEATE [Concomitant]
     Dosage: 2.5 MG, 2X/DAY
     Route: 047
  2. HYDROCHLOROTHIAZIDE [Concomitant]
     Indication: HYPERTENSION
     Dosage: 25 MG, 1X/DAY
     Route: 048
  3. OLMESARTAN MEDOXOMIL AND HYDROCHLOROTHIZIDE [Suspect]
     Indication: HYPERTENSION
     Dosage: [OLMESARTAN MEDOXOMIL 20 MG]/[ HYDROCHLOROTHIAZIDE 12.5 MG], DAILY
     Dates: start: 20071003
  4. LOSARTAN [Concomitant]
     Indication: HYPERTENSION
     Dosage: 25 MG, 1X/DAY
     Route: 048
  5. ASPIRIN [Concomitant]
     Dosage: 100 MG, 1X/DAY
  6. LIPITOR [Suspect]
     Indication: DYSLIPIDAEMIA
     Dosage: 20 MG, 1X/DAY
     Route: 048
     Dates: start: 20071003

REACTIONS (1)
  - DEATH [None]
